FAERS Safety Report 11654325 (Version 1)
Quarter: 2015Q4

REPORT INFORMATION
  Report Type: Spontaneous
  Country: US (occurrence: None)
  Receive Date: 20151022
  Receipt Date: 20151022
  Transmission Date: 20160304
  Serious: No
  Sender: FDA-Public Use
  Company Number: None

PATIENT
  Age: 34 Year
  Sex: Female
  Weight: 62.6 kg

DRUGS (2)
  1. CEPHALEXIN 500MG AUROBINDO PHARM [Suspect]
     Active Substance: CEPHALEXIN
     Indication: SURGERY
     Route: 048
     Dates: start: 20150926, end: 20151002
  2. HYDROCODONE/APAP [Suspect]
     Active Substance: ACETAMINOPHEN\HYDROCODONE BITARTRATE
     Indication: PAIN
     Route: 048
     Dates: start: 20150926, end: 20150929

REACTIONS (2)
  - Hypersensitivity [None]
  - Genital rash [None]

NARRATIVE: CASE EVENT DATE: 20151013
